FAERS Safety Report 9479683 (Version 1)
Quarter: 2013Q3

REPORT INFORMATION
  Report Type: Report from Study
  Country: VE (occurrence: VE)
  Receive Date: 20130827
  Receipt Date: 20130827
  Transmission Date: 20140515
  Serious: Yes (Death, Hospitalization)
  Sender: FDA-Public Use
  Company Number: PHHY2013VE091678

PATIENT
  Age: 69 Year
  Sex: Female

DRUGS (1)
  1. SANDOSTATIN LAR [Suspect]
     Indication: NEOPLASM MALIGNANT
     Dosage: 1 AMPOULE EACH 28 DAYS
     Dates: start: 2011

REACTIONS (3)
  - Respiratory arrest [Fatal]
  - Dehydration [Unknown]
  - Vomiting [Unknown]
